FAERS Safety Report 9894894 (Version 2)
Quarter: 2014Q2

REPORT INFORMATION
  Report Type: Spontaneous
  Country: US (occurrence: US)
  Receive Date: 20140213
  Receipt Date: 20140501
  Transmission Date: 20141212
  Serious: No
  Sender: FDA-Public Use
  Company Number: US-GILEAD-2014-0094386

PATIENT
  Age: 53 Year
  Sex: Female

DRUGS (6)
  1. LETAIRIS [Suspect]
     Indication: PULMONARY ARTERIAL HYPERTENSION
     Dosage: 10 MG, QD
     Route: 065
     Dates: start: 20131107
  2. REMODULIN [Concomitant]
  3. ADCIRCA [Concomitant]
  4. COUMADIN                           /00014802/ [Concomitant]
  5. LASIX                              /00032601/ [Concomitant]
  6. SPIRONOLACTONE [Concomitant]

REACTIONS (3)
  - Infusion site pain [Not Recovered/Not Resolved]
  - Pain in jaw [Not Recovered/Not Resolved]
  - Myalgia [Not Recovered/Not Resolved]
